FAERS Safety Report 5760791-4 (Version None)
Quarter: 2008Q2

REPORT INFORMATION
  Report Type: 
  Country: None (occurrence: None)
  Receive Date: 20080606
  Receipt Date: 20080527
  Transmission Date: 20081010
  Serious: Yes (Other)
  Sender: FDA-Public Use
  Company Number: JP-JNJFOC-20080504690

PATIENT
  Age: 39 Year
  Sex: Female

DRUGS (3)
  1. FENTANYL TRANSDERMAL SYSTEM [Suspect]
     Indication: DRUG USE FOR UNKNOWN INDICATION
     Route: 062
  2. TS-1 [Concomitant]
  3. TAXOL [Concomitant]
     Route: 041

REACTIONS (4)
  - BLISTER [None]
  - PIGMENTATION DISORDER [None]
  - PRURITUS GENERALISED [None]
  - SKIN EROSION [None]
